FAERS Safety Report 18232369 (Version 2)
Quarter: 2021Q2

REPORT INFORMATION
  Report Type: Spontaneous
  Country: FR (occurrence: FR)
  Receive Date: 20200904
  Receipt Date: 20210603
  Transmission Date: 20210717
  Serious: Yes (Hospitalization)
  Sender: FDA-Public Use
  Company Number: FR-TEVA-2020-FR-1822446

PATIENT
  Age: 59 Year
  Sex: Female
  Weight: 47 kg

DRUGS (2)
  1. METRONIDAZOLE. [Suspect]
     Active Substance: METRONIDAZOLE
     Indication: PERIODONTITIS
     Dosage: UNKNOWN
     Route: 048
     Dates: start: 202004, end: 202004
  2. AMOXICILLINE [Suspect]
     Active Substance: AMOXICILLIN
     Indication: PERIODONTITIS
     Dosage: UNKNOWN
     Route: 048
     Dates: start: 202004, end: 202004

REACTIONS (2)
  - Dermatitis bullous [Recovered/Resolved]
  - Rash [Recovered/Resolved]

NARRATIVE: CASE EVENT DATE: 20200508
